FAERS Safety Report 16433093 (Version 1)
Quarter: 2019Q2

REPORT INFORMATION
  Report Type: Spontaneous
  Country: US (occurrence: US)
  Receive Date: 20190614
  Receipt Date: 20190614
  Transmission Date: 20190711
  Serious: No
  Sender: FDA-Public Use
  Company Number: US-JNJFOC-20160807251

PATIENT
  Sex: Male
  Weight: 123 kg

DRUGS (15)
  1. INDOMETHACIN. [Concomitant]
     Active Substance: INDOMETHACIN
  2. VITAMIN B6 [Concomitant]
     Active Substance: PYRIDOXINE HYDROCHLORIDE
  3. ALLOPURINOL. [Concomitant]
     Active Substance: ALLOPURINOL
  4. PRAMIPEXOLE. [Concomitant]
     Active Substance: PRAMIPEXOLE
  5. IMBRUVICA [Suspect]
     Active Substance: IBRUTINIB
     Indication: CHRONIC LYMPHOCYTIC LEUKAEMIA
     Route: 048
     Dates: start: 20160406
  6. INSULIN [Concomitant]
     Active Substance: INSULIN NOS
  7. ATORVASTATIN [Concomitant]
     Active Substance: ATORVASTATIN
  8. GLUCOSAMINE [Concomitant]
     Active Substance: GLUCOSAMINE
  9. INSULIN HUMAN INJECTION, ISOPHANE [Concomitant]
     Active Substance: INSULIN HUMAN
  10. LISINOPRIL. [Concomitant]
     Active Substance: LISINOPRIL
  11. CITALOPRAM [Concomitant]
     Active Substance: CITALOPRAM HYDROBROMIDE
  12. CARBIDOPA. [Concomitant]
     Active Substance: CARBIDOPA
  13. GABAPENTINE [Concomitant]
     Active Substance: GABAPENTIN
  14. HYDROXYZINE [Concomitant]
     Active Substance: HYDROXYZINE HYDROCHLORIDE
  15. TRAZODONE [Concomitant]
     Active Substance: TRAZODONE HYDROCHLORIDE

REACTIONS (1)
  - Adverse event [Unknown]

NARRATIVE: CASE EVENT DATE: 2016
